FAERS Safety Report 10241112 (Version 5)
Quarter: 2015Q3

REPORT INFORMATION
  Report Type: Report from Study
  Country: GR (occurrence: GR)
  Receive Date: 20140617
  Receipt Date: 20150812
  Transmission Date: 20151125
  Serious: Yes (Other)
  Sender: FDA-Public Use
  Company Number: PHHY2014GR045710

PATIENT
  Age: 73 Year
  Sex: Male
  Weight: 88 kg

DRUGS (9)
  1. FINAR [Concomitant]
     Indication: HYPERTROPHY
     Dosage: 5 UG, UNK
     Route: 065
  2. LASIX [Concomitant]
     Active Substance: FUROSEMIDE
     Indication: HYPERTENSION
     Dosage: 40 MG, UNK
     Route: 065
     Dates: start: 20140131, end: 20140410
  3. ZYLORIC [Concomitant]
     Active Substance: ALLOPURINOL
     Indication: HYPERURICAEMIA
     Dosage: 100 UG, UNK
     Route: 065
  4. EXJADE [Suspect]
     Active Substance: DEFERASIROX
     Dosage: 1000 MG, QD,  11.3MG/KG/DAY
     Route: 048
     Dates: start: 20140509
  5. EXJADE [Suspect]
     Active Substance: DEFERASIROX
     Indication: MYELODYSPLASTIC SYNDROME
     Dosage: 1500 MG, DAILY, 17MG/MG/KG/DAY
     Route: 048
     Dates: start: 20131003, end: 20140508
  6. SALOSPIR [Concomitant]
     Active Substance: ASPIRIN\CAFFEINE
     Indication: ANGIOPATHY
     Dosage: 100 UG, UNK
     Route: 065
  7. LASIX [Concomitant]
     Active Substance: FUROSEMIDE
     Dosage: 90 MG, UNK
     Dates: start: 20140411
  8. CARVEPEN [Concomitant]
     Active Substance: CARVEDILOL
     Indication: HYPERTENSION
     Dosage: 9357 UG, UNK
     Route: 065
  9. FRUMIL [Concomitant]
     Active Substance: AMILORIDE HYDROCHLORIDE\FUROSEMIDE
     Indication: HYPERTENSION
     Route: 048
     Dates: end: 20140430

REACTIONS (2)
  - Renal impairment [Unknown]
  - Blood creatinine increased [Recovered/Resolved]

NARRATIVE: CASE EVENT DATE: 20140410
